FAERS Safety Report 5082417-8 (Version None)
Quarter: 2006Q3

REPORT INFORMATION
  Report Type: 
  Country: None (occurrence: None)
  Receive Date: 20060817
  Receipt Date: 20060803
  Transmission Date: 20061208
  Serious: Yes (Other)
  Sender: FDA-Public Use
  Company Number: IT-GLAXOSMITHKLINE-B0433552A

PATIENT
  Age: 45 Year
  Sex: Male

DRUGS (10)
  1. ZIDOVUDINE [Suspect]
     Indication: SYSTEMIC ANTIVIRAL TREATMENT
     Route: 065
  2. LAMIVUDINE [Suspect]
     Indication: SYSTEMIC ANTIVIRAL TREATMENT
     Route: 065
  3. INDINIVIR SULFATE [Suspect]
     Indication: SYSTEMIC ANTIVIRAL TREATMENT
     Route: 065
  4. CHOP [Suspect]
     Indication: DRUG USE FOR UNKNOWN INDICATION
     Route: 065
  5. RITUXIMAB [Suspect]
     Indication: DRUG USE FOR UNKNOWN INDICATION
     Route: 065
  6. CHEMOTHERAPY [Suspect]
     Indication: CHEMOTHERAPY
     Route: 065
  7. CYCLOPHOSPHAMIDE [Suspect]
     Route: 065
  8. NEUPOGEN [Suspect]
     Route: 065
  9. RED BLOOD CELLS [Concomitant]
     Route: 065
  10. PLATELETS [Concomitant]
     Route: 065

REACTIONS (9)
  - B-LYMPHOCYTE COUNT DECREASED [None]
  - BLOOD HIV RNA INCREASED [None]
  - CD4 LYMPHOCYTES DECREASED [None]
  - CD8 LYMPHOCYTES INCREASED [None]
  - IMMUNE RECONSTITUTION SYNDROME [None]
  - LYMPHOCYTE COUNT INCREASED [None]
  - LYMPHOMA [None]
  - MUCOSAL INFLAMMATION [None]
  - REBOUND EFFECT [None]
